FAERS Safety Report 7223448-9 (Version None)
Quarter: 2011Q1

REPORT INFORMATION
  Report Type: 
  Country: None (occurrence: None)
  Receive Date: 20110112
  Receipt Date: 20100928
  Transmission Date: 20110831
  Serious: No
  Sender: FDA-Public Use
  Company Number: US-ALLERGAN-0907561US

PATIENT
  Sex: Female

DRUGS (3)
  1. RESTASIS [Suspect]
     Indication: DRY EYE
     Dosage: UNK, UNK
     Route: 047
     Dates: start: 20090501
  2. LUMIGAN [Suspect]
     Indication: PRODUCT USED FOR UNKNOWN INDICATION
     Dosage: UNK
  3. COMBIGAN[R] [Concomitant]

REACTIONS (13)
  - STICKY SKIN [None]
  - ARTHRITIS [None]
  - SEASONAL ALLERGY [None]
  - COUGH [None]
  - SALIVARY HYPERSECRETION [None]
  - URTICARIA [None]
  - EYE PRURITUS [None]
  - SKIN IRRITATION [None]
  - DROOLING [None]
  - DRY SKIN [None]
  - DYSPNOEA [None]
  - PRURITUS [None]
  - EYE IRRITATION [None]
